FAERS Safety Report 16907376 (Version 1)
Quarter: 2019Q4

REPORT INFORMATION
  Report Type: Spontaneous
  Country: US (occurrence: US)
  Receive Date: 20190819
  Receipt Date: 20190819
  Transmission Date: 20200122
  Serious: No
  Sender: FDA-Public Use
  Company Number: None

PATIENT
  Age: 50 Year
  Sex: Female

DRUGS (1)
  1. ENBREL [Suspect]
     Active Substance: ETANERCEPT
     Dates: start: 20190811

REACTIONS (5)
  - Pruritus [None]
  - Psoriasis [None]
  - Erythema [None]
  - Feeling jittery [None]
  - Rash [None]

NARRATIVE: CASE EVENT DATE: 20190819
